FAERS Safety Report 4694948-0 (Version None)
Quarter: 2005Q2

REPORT INFORMATION
  Report Type: 
  Country: None (occurrence: None)
  Receive Date: 20050617
  Receipt Date: 20050609
  Transmission Date: 20051028
  Serious: Yes (Hospitalization)
  Sender: FDA-Public Use
  Company Number: 200510403BFR

PATIENT
  Age: 80 Year
  Sex: Male

DRUGS (9)
  1. CIPROFLOXACIN [Suspect]
     Dosage: ORAL
     Route: 048
     Dates: start: 20050426, end: 20050516
  2. AZACTAM [Suspect]
     Dosage: ORAL
     Route: 048
     Dates: start: 20050429, end: 20050517
  3. VANCOMYCIN [Suspect]
     Dosage: ORAL
     Route: 048
     Dates: start: 20050429, end: 20050516
  4. VFEND [Concomitant]
  5. LASIX [Concomitant]
  6. GRANOCYTE [Concomitant]
  7. DILTIAZEM HYDROCHLORIDE [Concomitant]
  8. ZOLOFT [Concomitant]
  9. ZOCOR [Concomitant]

REACTIONS (2)
  - PURPURA [None]
  - RASH MACULO-PAPULAR [None]
